FAERS Safety Report 20392716 (Version 1)
Quarter: 2022Q1

REPORT INFORMATION
  Report Type: Spontaneous
  Country: US (occurrence: US)
  Receive Date: 20220128
  Receipt Date: 20220128
  Transmission Date: 20220423
  Serious: Yes (Other)
  Sender: FDA-Public Use
  Company Number: US-BAYER-2022A013012

PATIENT
  Sex: Female

DRUGS (1)
  1. MIRENA [Suspect]
     Active Substance: LEVONORGESTREL
     Indication: Contraception
     Dosage: 20?G/DAY
     Route: 015

REACTIONS (13)
  - Suicidal ideation [None]
  - Depression [None]
  - Anxiety [None]
  - Attention deficit hyperactivity disorder [None]
  - Decreased interest [None]
  - Panic attack [None]
  - Insomnia [None]
  - Dyspareunia [None]
  - Anorgasmia [None]
  - Amenorrhoea [None]
  - Weight increased [None]
  - Thyroid disorder [None]
  - Infertility female [None]
